FAERS Safety Report 5492438-9 (Version None)
Quarter: 2007Q4

REPORT INFORMATION
  Report Type: 
  Country: None (occurrence: None)
  Receive Date: 20071015
  Receipt Date: 20070728
  Transmission Date: 20080405
  Serious: No
  Sender: FDA-Public Use
  Company Number: 2007SP002684

PATIENT
  Age: 26 Year
  Sex: Female
  Weight: 55.7924 kg

DRUGS (2)
  1. LUNESTA [Suspect]
     Indication: INSOMNIA
     Dosage: 3 MG 1X ORAL
     Route: 048
     Dates: start: 20070728, end: 20070728
  2. CLONAZEPAM [Concomitant]

REACTIONS (4)
  - DYSGEUSIA [None]
  - DYSPNOEA [None]
  - INSOMNIA [None]
  - PAROSMIA [None]
